FAERS Safety Report 24021949 (Version 1)
Quarter: 2024Q2

REPORT INFORMATION
  Report Type: Spontaneous
  Country: JP (occurrence: JP)
  Receive Date: 20240627
  Receipt Date: 20240627
  Transmission Date: 20240716
  Serious: No
  Sender: FDA-Public Use
  Company Number: JP-CHUGAI-2024005481

PATIENT
  Age: 6 Decade
  Sex: Female

DRUGS (1)
  1. VABYSMO [Suspect]
     Active Substance: FARICIMAB\FARICIMAB-SVOA
     Indication: Diabetic retinal oedema
     Dosage: 6 MILLIGRAM, ONCE/MONTH
     Route: 050
     Dates: start: 20240129

REACTIONS (1)
  - Intra-ocular injection complication [Recovered/Resolved]

NARRATIVE: CASE EVENT DATE: 20240129
